FAERS Safety Report 20607886 (Version 1)
Quarter: 2022Q1

REPORT INFORMATION
  Report Type: Spontaneous
  Country: US (occurrence: US)
  Receive Date: 20220317
  Receipt Date: 20220317
  Transmission Date: 20220423
  Serious: No
  Sender: FDA-Public Use
  Company Number: US-SANOFI-01008338

PATIENT
  Sex: Female

DRUGS (3)
  1. LANTUS SOLOSTAR [Suspect]
     Active Substance: INSULIN GLARGINE
     Indication: Diabetes mellitus
  2. HUMALOG [Concomitant]
     Active Substance: INSULIN LISPRO
     Indication: Blood glucose abnormal
     Dosage: 7 IU
  3. HUMALOG [Concomitant]
     Active Substance: INSULIN LISPRO
     Dosage: 20 IU

REACTIONS (2)
  - Blood glucose decreased [Unknown]
  - Wrong product administered [Unknown]
